FAERS Safety Report 8813068 (Version 2)
Quarter: 2012Q4

REPORT INFORMATION
  Report Type: 
  Country: JP (occurrence: JP)
  Receive Date: 20120927
  Receipt Date: 20121005
  Transmission Date: 20130627
  Serious: Yes (Death)
  Sender: FDA-Public Use
  Company Number: JP-ROCHE-1136810

PATIENT
  Age: 73 Year
  Sex: Female

DRUGS (7)
  1. AVASTIN [Suspect]
     Indication: COLON CANCER
     Dosage: Dosage is uncertain.
     Route: 041
  2. ELPLAT [Concomitant]
     Indication: COLON CANCER
     Dosage: Dosage is uncertain.
     Route: 041
  3. LEVOFOLINATE [Concomitant]
     Indication: COLON CANCER
     Dosage: Dosage is uncertain.
     Route: 041
  4. 5-FU [Concomitant]
     Indication: COLON CANCER
     Dosage: Dosage is uncertain.
     Route: 040
  5. 5-FU [Concomitant]
     Indication: COLON CANCER
     Dosage: Dosage is uncertain.
     Route: 041
  6. CAMPTO [Concomitant]
     Indication: COLON CANCER
     Dosage: Dosage is uncertain.
     Route: 041
  7. ERBITUX [Concomitant]
     Indication: COLON CANCER
     Dosage: Dosage is uncertain.
     Route: 041

REACTIONS (1)
  - Interstitial lung disease [Fatal]
